FAERS Safety Report 5699352-4 (Version None)
Quarter: 2008Q2

REPORT INFORMATION
  Report Type: 
  Country: None (occurrence: None)
  Receive Date: 20080404
  Receipt Date: 20080310
  Transmission Date: 20081010
  Serious: Yes (Hospitalization)
  Sender: FDA-Public Use
  Company Number: 20084707

PATIENT
  Sex: Male

DRUGS (1)
  1. LIORESAL [Suspect]
     Indication: MUSCLE SPASTICITY
     Dosage: DAILY, INTRATHECAL
     Route: 037

REACTIONS (11)
  - CARDIOVASCULAR DISORDER [None]
  - CATHETER RELATED COMPLICATION [None]
  - ELECTROCARDIOGRAM CHANGE [None]
  - HEADACHE [None]
  - MUSCLE SPASTICITY [None]
  - PARAESTHESIA [None]
  - PNEUMONIA [None]
  - PYREXIA [None]
  - RESPIRATORY DISORDER [None]
  - THERAPEUTIC PRODUCT INEFFECTIVE [None]
  - WITHDRAWAL SYNDROME [None]
